FAERS Safety Report 22129706 (Version 3)
Quarter: 2023Q2

REPORT INFORMATION
  Report Type: Report from Study
  Country: CO (occurrence: CO)
  Receive Date: 20230323
  Receipt Date: 20230505
  Transmission Date: 20230722
  Serious: Yes (Hospitalization)
  Sender: FDA-Public Use
  Company Number: CO-002147023-NVSC2022CO127002

PATIENT
  Age: 49 Year
  Sex: Female
  Weight: 82 kg

DRUGS (16)
  1. XOLAIR [Suspect]
     Active Substance: OMALIZUMAB
     Indication: Idiopathic urticaria
     Dosage: 300 MG, QMO (300 MG (2 OF 150MG) (UNDER TREATMENT FOR FOUR MORE MONTHS)
     Route: 058
     Dates: start: 20220429
  2. XOLAIR [Suspect]
     Active Substance: OMALIZUMAB
     Dosage: UNK
     Route: 065
     Dates: start: 20220604
  3. XOLAIR [Suspect]
     Active Substance: OMALIZUMAB
     Dosage: UNK
     Route: 058
     Dates: start: 20230217
  4. XOLAIR [Suspect]
     Active Substance: OMALIZUMAB
     Dosage: 300 MG, QMO
     Route: 058
  5. XOLAIR [Suspect]
     Active Substance: OMALIZUMAB
     Indication: Idiopathic urticaria
     Dosage: UNK
     Route: 065
  6. MONTELUKAST [Suspect]
     Active Substance: MONTELUKAST SODIUM
     Indication: Product used for unknown indication
     Dosage: 4 MG (TAKING IT FOR 5 DAYS APPROXIMATELY)
     Route: 065
  7. PREGABALIN [Suspect]
     Active Substance: PREGABALIN
     Indication: Product used for unknown indication
     Dosage: 1 DOSAGE FORM, QD (DAILY (BETWEEN 5 AND 6 PM))
     Route: 048
     Dates: start: 2021
  8. PREGABALIN [Suspect]
     Active Substance: PREGABALIN
     Dosage: UNK, PRN
     Route: 048
  9. LEVOTHYROXINE SODIUM [Concomitant]
     Active Substance: LEVOTHYROXINE SODIUM
     Indication: Product used for unknown indication
     Dosage: 1 DOSAGE FORM, QD ((EUTHYROX)(DAILY (1 HOUR BEFORE BREAKFAST))
     Route: 048
     Dates: start: 2010
  10. FLUOXETINE [Concomitant]
     Active Substance: FLUOXETINE HYDROCHLORIDE
     Indication: Product used for unknown indication
     Dosage: 1 DOSAGE FORM, QD ((LAPROFF) (DAILY IN THE MORNING)
     Route: 048
     Dates: start: 2017
  11. FLUOXETINE [Concomitant]
     Active Substance: FLUOXETINE HYDROCHLORIDE
     Dosage: UNK, PRN
     Route: 048
  12. TRAZODONE [Concomitant]
     Active Substance: TRAZODONE HYDROCHLORIDE
     Indication: Product used for unknown indication
     Dosage: 1 DOSAGE FORM((BUSSIE) (AS NEEDED AT NIGHT)
     Route: 048
     Dates: start: 2020
  13. TRAZODONE [Concomitant]
     Active Substance: TRAZODONE HYDROCHLORIDE
     Dosage: UNK, PRN
     Route: 048
  14. BILASTINE [Concomitant]
     Active Substance: BILASTINE
     Indication: Product used for unknown indication
     Dosage: 4 DOSAGE FORM, QD (DAILY ((FAES FARMA) (TWO IN THE MORNING AND TWO AT NIGHT)
     Route: 048
     Dates: start: 2022
  15. EUTHYROX [Concomitant]
     Active Substance: LEVOTHYROXINE SODIUM
     Indication: Product used for unknown indication
     Dosage: 100 MG, PRN
     Route: 065
  16. FEXOFENADINE [Concomitant]
     Active Substance: FEXOFENADINE HYDROCHLORIDE
     Indication: Product used for unknown indication
     Dosage: 120 MG, QD
     Route: 065

REACTIONS (17)
  - Swelling face [Recovered/Resolved]
  - Chills [Unknown]
  - Cough [Not Recovered/Not Resolved]
  - Pruritus [Unknown]
  - Abdominal pain [Unknown]
  - Pyrexia [Unknown]
  - Urticaria [Unknown]
  - Diarrhoea [Unknown]
  - Arthralgia [Unknown]
  - Discouragement [Unknown]
  - Muscle spasms [Unknown]
  - Swelling [Unknown]
  - Lip swelling [Unknown]
  - Depressed mood [Unknown]
  - Malaise [Unknown]
  - Nasopharyngitis [Unknown]
  - Product dose omission issue [Unknown]

NARRATIVE: CASE EVENT DATE: 20220526
